FAERS Safety Report 9116186 (Version 2)
Quarter: 2013Q2

REPORT INFORMATION
  Report Type: Report from Study
  Country: DE (occurrence: DE)
  Receive Date: 20130225
  Receipt Date: 20130510
  Transmission Date: 20140414
  Serious: Yes (Hospitalization)
  Sender: FDA-Public Use
  Company Number: DE-EISAI INC-E2007-00878-CLI-DE

PATIENT
  Age: 49 Year
  Sex: Female
  Weight: 64 kg

DRUGS (8)
  1. E2007 (PERAMPANEL) [Suspect]
     Indication: PARTIAL SEIZURES
     Dosage: DOUBLE BLIND CONVERSION PERIOD
     Route: 048
     Dates: start: 20101012, end: 20110207
  2. E2007 (PERAMPANEL) [Suspect]
     Dosage: OPEN LABEL
     Route: 048
     Dates: start: 20110208, end: 20121025
  3. E2007 (PERAMPANEL) [Suspect]
     Dosage: COMMERCIAL PERAMPANEL
     Route: 048
  4. PRIMIDON [Concomitant]
     Indication: EPILEPSY
     Route: 048
     Dates: start: 2000
  5. PRIMIDON [Concomitant]
     Route: 048
     Dates: start: 2000
  6. LAMOTRIGINE [Concomitant]
     Indication: EPILEPSY
     Route: 048
     Dates: start: 20080115
  7. LAMOTRIGINE [Concomitant]
     Route: 048
     Dates: start: 20080115
  8. LEVETIRACETAM [Concomitant]
     Indication: EPILEPSY
     Route: 048
     Dates: start: 20050426

REACTIONS (1)
  - Peripheral sensorimotor neuropathy [Not Recovered/Not Resolved]
